FAERS Safety Report 7970335-4 (Version None)
Quarter: 2011Q4

REPORT INFORMATION
  Report Type: 
  Country: None (occurrence: None)
  Receive Date: 20111209
  Receipt Date: 20111205
  Transmission Date: 20120403
  Serious: No
  Sender: FDA-Public Use
  Company Number: DL2011-0924

PATIENT
  Age: 20 Year
  Sex: Female

DRUGS (4)
  1. MIFEPRISTONE (MIFEPREX) [Suspect]
     Indication: ABORTION INDUCED
     Dosage: 200 MG, ORAL
     Route: 048
     Dates: start: 20111021
  2. MISOPROSTOL [Suspect]
     Dosage: 800 MCG, BUCCAL
     Route: 002
     Dates: start: 20111117
  3. MISOPROSTOL [Suspect]
     Dosage: 800 MCG, BUCCAL
     Route: 002
     Dates: start: 20111022
  4. DOXYCYCLINE [Concomitant]

REACTIONS (6)
  - ABORTION INCOMPLETE [None]
  - HAEMORRHAGE [None]
  - THROMBOSIS [None]
  - DIZZINESS [None]
  - HYPERHIDROSIS [None]
  - ANAEMIA [None]
